FAERS Safety Report 17992399 (Version 2)
Quarter: 2020Q3

REPORT INFORMATION
  Report Type: Spontaneous
  Country: US (occurrence: US)
  Receive Date: 20200707
  Receipt Date: 20200719
  Transmission Date: 20201103
  Serious: Yes (Other)
  Sender: FDA-Public Use
  Company Number: NVSC2020US182205

PATIENT

DRUGS (2)
  1. RIBOCICLIB. [Suspect]
     Active Substance: RIBOCICLIB
     Indication: BREAST CANCER METASTATIC
     Dosage: UNK
     Route: 065
  2. RIBOCICLIB. [Suspect]
     Active Substance: RIBOCICLIB
     Indication: OVARIAN CANCER METASTATIC

REACTIONS (2)
  - Atrial flutter [Unknown]
  - Atrial fibrillation [Unknown]
